FAERS Safety Report 9427910 (Version 1)
Quarter: 2013Q3

REPORT INFORMATION
  Report Type: Spontaneous
  Country: FR (occurrence: FR)
  Receive Date: 20130730
  Receipt Date: 20130730
  Transmission Date: 20140515
  Serious: Yes (Other)
  Sender: FDA-Public Use
  Company Number: FR-PFIZER INC-2013217799

PATIENT
  Age: 29 Year
  Sex: Female

DRUGS (6)
  1. MEDROL [Suspect]
     Indication: MULTIPLE SCLEROSIS
     Dosage: 16 MG, 1X/DAY
     Route: 048
     Dates: start: 20130512
  2. METHYLPREDNISOLONE MYLAN [Suspect]
     Indication: MULTIPLE SCLEROSIS
     Dosage: 1 G, 1X/DAY
     Route: 040
     Dates: start: 20130507, end: 20130511
  3. IXEL [Concomitant]
     Dosage: 2 DF DAILY
  4. GILENYA [Concomitant]
     Dosage: 1 DF DAILY
     Dates: start: 20130214, end: 20130507
  5. GILENYA [Concomitant]
     Dosage: 1 DF DAILY
     Dates: start: 20130523
  6. INTRAUTERINE CONTRACEPTIVE DEVICE [Concomitant]

REACTIONS (1)
  - Chorioretinitis [Not Recovered/Not Resolved]
